FAERS Safety Report 16462433 (Version 1)
Quarter: 2019Q2

REPORT INFORMATION
  Report Type: Spontaneous
  Country: FR (occurrence: FR)
  Receive Date: 20190621
  Receipt Date: 20190621
  Transmission Date: 20190711
  Serious: Yes (Other)
  Sender: FDA-Public Use
  Company Number: FR-PFIZER INC-2019261719

PATIENT
  Age: 27 Year
  Sex: Male

DRUGS (5)
  1. XANAX [Suspect]
     Active Substance: ALPRAZOLAM
     Indication: SUICIDE ATTEMPT
     Dosage: 60 DF, SINGLE
     Route: 048
     Dates: start: 20180607, end: 20180607
  2. HAVLANE [Suspect]
     Active Substance: LOPRAZOLAM
     Indication: SUICIDE ATTEMPT
     Dosage: 20 DF, SINGLE
     Route: 048
     Dates: start: 20180607, end: 20180607
  3. LAMALINE [ATROPA BELLADONNA EXTRACT;CAFFEINE;PAPAVER SOMNIFERUM TINCTU [Suspect]
     Active Substance: ACETAMINOPHEN\BELLADONNA LEAF\CAFFEINE\OPIUM
     Indication: SUICIDE ATTEMPT
     Dosage: 32 DF, SINGLE
     Route: 048
     Dates: start: 20180607, end: 20180607
  4. FLUOXETINE HCL [Suspect]
     Active Substance: FLUOXETINE HYDROCHLORIDE
     Indication: SUICIDE ATTEMPT
     Dosage: 28 DF, SINGLE
     Route: 048
     Dates: start: 20180607, end: 20180607
  5. DOMPERIDONE [Suspect]
     Active Substance: DOMPERIDONE
     Indication: SUICIDE ATTEMPT
     Dosage: 40 DF, SINGLE
     Route: 048
     Dates: start: 20180607, end: 20180607

REACTIONS (3)
  - Intentional overdose [Recovered/Resolved]
  - Somnolence [Recovered/Resolved]
  - Toxicity to various agents [Recovered/Resolved]

NARRATIVE: CASE EVENT DATE: 20180607
